FAERS Safety Report 13421522 (Version 3)
Quarter: 2018Q1

REPORT INFORMATION
  Report Type: Spontaneous
  Country: FI (occurrence: FI)
  Receive Date: 20170410
  Receipt Date: 20180326
  Transmission Date: 20180508
  Serious: Yes (Other)
  Sender: FDA-Public Use
  Company Number: FI-ROCHE-1914188

PATIENT
  Age: 51 Year
  Sex: Female

DRUGS (11)
  1. KADCYLA [Suspect]
     Active Substance: ADO-TRASTUZUMAB EMTANSINE
     Indication: HER-2 POSITIVE BREAST CANCER
     Dosage: AS 2ND LINE TREATMENT
     Route: 042
     Dates: start: 20150101, end: 20170301
  2. XGEVA [Concomitant]
     Active Substance: DENOSUMAB
     Dosage: AS MAINTENANCE THERAPY, 6 TREATMENTS
     Route: 065
     Dates: start: 201411, end: 201503
  3. XGEVA [Concomitant]
     Active Substance: DENOSUMAB
     Indication: HER-2 POSITIVE BREAST CANCER
     Route: 065
     Dates: start: 20130801
  4. ZOMETA [Concomitant]
     Active Substance: ZOLEDRONIC ACID
     Indication: HER-2 POSITIVE BREAST CANCER
     Dosage: AS 1ST LINE TREATMENT, 9 CYCLES
     Route: 065
     Dates: start: 2010
  5. ZOMETA [Concomitant]
     Active Substance: ZOLEDRONIC ACID
     Dosage: AS MAINTENANCE THERAPY
     Route: 065
     Dates: start: 20101101, end: 20130801
  6. HERCEPTIN [Suspect]
     Active Substance: TRASTUZUMAB
     Indication: HER-2 POSITIVE BREAST CANCER
     Dosage: AS 1ST LINE TREATMENT, 9 CYCLES
     Route: 065
     Dates: start: 20100101
  7. HERCEPTIN [Suspect]
     Active Substance: TRASTUZUMAB
     Dosage: AS MAINTENANCE THERAPY
     Route: 065
     Dates: start: 20101101
  8. HERCEPTIN [Suspect]
     Active Substance: TRASTUZUMAB
     Dosage: AS MAINTENANCE THERAPY, 6 TREATMENTS
     Route: 065
     Dates: start: 20141101, end: 20150301
  9. HERCEPTIN [Suspect]
     Active Substance: TRASTUZUMAB
     Dosage: AS MAINTENANCE THERAPY
     Route: 065
     Dates: start: 201703
  10. DOCETAXEL. [Suspect]
     Active Substance: DOCETAXEL
     Indication: HER-2 POSITIVE BREAST CANCER
     Dosage: AS 1ST LINE TREATMENT, 9 CYCLES
     Route: 065
     Dates: start: 20100101
  11. DOCETAXEL. [Suspect]
     Active Substance: DOCETAXEL
     Dosage: AS MAINTENANCE THERAPY, 6 TREATMENTS
     Route: 065
     Dates: start: 20141101, end: 20150301

REACTIONS (13)
  - Transaminases increased [Recovering/Resolving]
  - Erysipelas [Unknown]
  - Muscular weakness [Unknown]
  - Neuropathy peripheral [Recovered/Resolved]
  - Epistaxis [Unknown]
  - Osteoarthritis [Recovered/Resolved]
  - Muscle spasms [Unknown]
  - Headache [Recovered/Resolved]
  - Thrombocytopenia [Unknown]
  - Septic shock [Unknown]
  - Fatigue [Recovered/Resolved]
  - Telangiectasia [Unknown]
  - Haemangioma [Unknown]

NARRATIVE: CASE EVENT DATE: 20130101
